FAERS Safety Report 6707952-5 (Version None)
Quarter: 2010Q2

REPORT INFORMATION
  Report Type: 
  Country: None (occurrence: None)
  Receive Date: 20100428
  Receipt Date: 20100413
  Transmission Date: 20101027
  Serious: No
  Sender: FDA-Public Use
  Company Number: LIT-10-0028

PATIENT

DRUGS (1)
  1. FLUOXETINE [Suspect]

REACTIONS (3)
  - PERIODIC LIMB MOVEMENT DISORDER [None]
  - RESTLESS LEGS SYNDROME [None]
  - UNEVALUABLE EVENT [None]
